FAERS Safety Report 17485471 (Version 3)
Quarter: 2020Q1

REPORT INFORMATION
  Report Type: Spontaneous
  Country: GB (occurrence: GB)
  Receive Date: 20200302
  Receipt Date: 20200326
  Transmission Date: 20200409
  Serious: Yes (Hospitalization)
  Sender: FDA-Public Use
  Company Number: GB-CELLTRION INC.-2020GB019801

PATIENT

DRUGS (2)
  1. INFLIXIMAB (UNKNOWN) [Suspect]
     Active Substance: INFLIXIMAB
     Indication: PUSTULAR PSORIASIS
     Dosage: UNK (ONCE EVERY 6 WEEKS)
     Route: 065
  2. FLUCLOXACILLIN [Concomitant]
     Active Substance: FLUCLOXACILLIN
     Indication: WOUND INFECTION
     Dosage: UNK
     Route: 048

REACTIONS (15)
  - Burn infection [Unknown]
  - Off label use [Unknown]
  - Inflammatory marker increased [Unknown]
  - Tachycardia [Unknown]
  - Cholecystitis [Unknown]
  - Tachypnoea [Unknown]
  - Product use in unapproved indication [Unknown]
  - Burning sensation [Unknown]
  - Dermatitis exfoliative generalised [Unknown]
  - Leukocytosis [Unknown]
  - Hypotension [Unknown]
  - Pustular psoriasis [Unknown]
  - Hyperlactacidaemia [Unknown]
  - Renal impairment [Unknown]
  - Hepatic function abnormal [Unknown]
